FAERS Safety Report 6492898-0 (Version None)
Quarter: 2009Q4

REPORT INFORMATION
  Report Type: 
  Country: None (occurrence: None)
  Receive Date: 20091214
  Receipt Date: 20091204
  Transmission Date: 20100525
  Serious: Yes (Hospitalization)
  Sender: FDA-Public Use
  Company Number: JP-ABBOTT-09P-087-0499783-00

PATIENT
  Sex: Female

DRUGS (13)
  1. HUMIRA [Suspect]
     Indication: RHEUMATOID ARTHRITIS
     Route: 058
     Dates: start: 20081008, end: 20081217
  2. METHOTREXATE [Suspect]
     Indication: RHEUMATOID ARTHRITIS
     Dosage: 8 MG PER WEEK
     Route: 048
     Dates: start: 20020401, end: 20090115
  3. FOLIC ACID [Concomitant]
     Indication: RHEUMATOID ARTHRITIS
     Route: 048
  4. FOLIC ACID [Concomitant]
     Indication: PROPHYLAXIS
     Route: 048
     Dates: end: 20090121
  5. FOLIC ACID [Concomitant]
     Indication: ADVERSE DRUG REACTION
  6. PREDNISOLONE [Concomitant]
     Indication: RHEUMATOID ARTHRITIS
     Route: 048
     Dates: end: 20090121
  7. ETODOLAC [Concomitant]
     Indication: RHEUMATOID ARTHRITIS
     Route: 048
     Dates: end: 20090121
  8. ATORVASTATIN CALCIUM [Concomitant]
     Indication: HYPERLIPIDAEMIA
     Route: 048
     Dates: end: 20090121
  9. PRANLUKAST [Concomitant]
     Indication: ASTHMA
     Route: 048
  10. THEOPHYLLINE [Concomitant]
     Indication: ASTHMA
     Route: 048
  11. TROXIPIDE [Concomitant]
     Indication: PROPHYLAXIS
     Route: 048
  12. TROXIPIDE [Concomitant]
     Indication: ADVERSE DRUG REACTION
  13. TROXIPIDE [Concomitant]
     Indication: GASTRITIS PROPHYLAXIS

REACTIONS (5)
  - COMPUTERISED TOMOGRAM THORAX ABNORMAL [None]
  - HIP ARTHROPLASTY [None]
  - INTERSTITIAL LUNG DISEASE [None]
  - PERIPROSTHETIC FRACTURE [None]
  - RHEUMATOID ARTHRITIS [None]
